FAERS Safety Report 4514196-4 (Version None)
Quarter: 2004Q4

REPORT INFORMATION
  Report Type: 
  Country: None (occurrence: None)
  Receive Date: 20041126
  Receipt Date: 20041109
  Transmission Date: 20050328
  Serious: Yes (Other)
  Sender: FDA-Public Use
  Company Number: ATO-04-0920

PATIENT
  Age: 56 Year
  Sex: Female

DRUGS (1)
  1. TRISNENOX (ARSENIC TRIOXIDE) [Suspect]
     Indication: MYELODYSPLASTIC SYNDROME
     Dosage: (0.25 MG/KG, QD FOR 5 DAYS OF 7 DAYS)
     Dates: start: 20041026, end: 20041031

REACTIONS (3)
  - DYSPNOEA [None]
  - FLUID RETENTION [None]
  - MYELODYSPLASTIC SYNDROME [None]
